FAERS Safety Report 12141258 (Version 1)
Quarter: 2016Q1

REPORT INFORMATION
  Report Type: Spontaneous
  Country: US (occurrence: None)
  Receive Date: 20160302
  Receipt Date: 20160302
  Transmission Date: 20160526
  Serious: No
  Sender: FDA-Public Use
  Company Number: None

PATIENT
  Age: 71 Year
  Sex: Female
  Weight: 70.31 kg

DRUGS (1)
  1. METHENAMINE HIPPURATE 1 GRAM GENERIC FOR HIPREX COUNTY LINE PHARMACEUTICAL [Suspect]
     Active Substance: METHENAMINE HIPPURATE
     Indication: URINARY TRACT INFECTION
     Dosage: 1G 1 PILL AM 1 PILL PM 1 PILL 2X DAILY BY MOUTH
     Route: 048
     Dates: start: 20151202, end: 20160210

REACTIONS (3)
  - Pyrexia [None]
  - Constipation [None]
  - Gastrointestinal motility disorder [None]
